FAERS Safety Report 7508078-3 (Version None)
Quarter: 2011Q2

REPORT INFORMATION
  Report Type: 
  Country: None (occurrence: None)
  Receive Date: 20110527
  Receipt Date: 20110517
  Transmission Date: 20111010
  Serious: Yes (Hospitalization, Other)
  Sender: FDA-Public Use
  Company Number: FR-BAYER-2011-018150

PATIENT
  Age: 49 Year
  Sex: Female
  Weight: 70 kg

DRUGS (1)
  1. BETAFERON [Suspect]
     Indication: MULTIPLE SCLEROSIS
     Dosage: 250 ?G, QOD
     Route: 058

REACTIONS (16)
  - CALCULUS BLADDER [None]
  - ANAEMIA FOLATE DEFICIENCY [None]
  - URINARY INCONTINENCE [None]
  - ASCITES [None]
  - VITAMIN D DEFICIENCY [None]
  - ASTHENIA [None]
  - DYSPNOEA [None]
  - OEDEMA PERIPHERAL [None]
  - ABDOMINAL DISTENSION [None]
  - NORMOCHROMIC NORMOCYTIC ANAEMIA [None]
  - HYPONATRAEMIA [None]
  - CACHEXIA [None]
  - VENTRICULAR FAILURE [None]
  - ABDOMINAL PAIN [None]
  - MALNUTRITION [None]
  - OEDEMA [None]
